FAERS Safety Report 13121767 (Version 1)
Quarter: 2017Q1

REPORT INFORMATION
  Report Type: Spontaneous
  Country: US (occurrence: US)
  Receive Date: 20170115
  Receipt Date: 20170115
  Transmission Date: 20170428
  Serious: Yes (Life-Threatening, Disabling, Other)
  Sender: FDA-Public Use
  Company Number: None

PATIENT
  Age: 68 Year
  Sex: Male
  Weight: 87.3 kg

DRUGS (1)
  1. JANUVIA [Suspect]
     Active Substance: SITAGLIPTIN PHOSPHATE
     Indication: GLUCOSE TOLERANCE IMPAIRED
     Dosage: ?          QUANTITY:90 TABLET(S);?
     Route: 048

REACTIONS (7)
  - Vomiting [None]
  - Chest discomfort [None]
  - Cough [None]
  - Renal disorder [None]
  - Respiratory disorder [None]
  - Sneezing [None]
  - Dyspnoea [None]

NARRATIVE: CASE EVENT DATE: 20161120
